FAERS Safety Report 21909122 (Version 3)
Quarter: 2023Q1

REPORT INFORMATION
  Report Type: Spontaneous
  Country: US (occurrence: US)
  Receive Date: 20230125
  Receipt Date: 20230210
  Transmission Date: 20230418
  Serious: Yes (Hospitalization)
  Sender: FDA-Public Use
  Company Number: US-002147023-NVSC2023US013653

PATIENT
  Sex: Female

DRUGS (3)
  1. TABRECTA [Suspect]
     Active Substance: CAPMATINIB
     Indication: Lung carcinoma cell type unspecified stage 0
     Dosage: 200 MG
     Route: 048
  2. TABRECTA [Suspect]
     Active Substance: CAPMATINIB
     Dosage: 2 DOSAGE FORM, BID (WITH WATER OR WITH OR WITHOUT FOOD)
     Route: 048
  3. PEN [Concomitant]
     Indication: Product used for unknown indication
     Dosage: UNK, BID (TAKE 2 TABLET BY MOUTH TWICE DAILY WHOLE WITH WATER, WITH OR WITHOIUT FOOD)
     Route: 065

REACTIONS (3)
  - Cystitis [Unknown]
  - Blood urine present [Unknown]
  - Spinal osteoarthritis [Unknown]
